FAERS Safety Report 8924275 (Version 1)
Quarter: 2012Q4

REPORT INFORMATION
  Report Type: 
  Country: US (occurrence: US)
  Receive Date: 20121126
  Receipt Date: 20121126
  Transmission Date: 20130627
  Serious: No
  Sender: FDA-Public Use
  Company Number: US-PFIZER INC-2012290849

PATIENT
  Age: 43 Year
  Sex: Female
  Weight: 61 kg

DRUGS (4)
  1. GENOTROPIN [Suspect]
     Dosage: 0.5 mg, every day
     Route: 058
  2. ZOLOFT [Concomitant]
     Dosage: 25 mg, UNK
  3. SYNTHROID [Concomitant]
     Dosage: 112 ug, UNK
  4. ADVIL [Concomitant]
     Dosage: 200 mg, UNK

REACTIONS (1)
  - Injection site bruising [Unknown]
